FAERS Safety Report 8410977-5 (Version None)
Quarter: 2012Q2

REPORT INFORMATION
  Report Type: 
  Country: None (occurrence: None)
  Receive Date: 20120605
  Receipt Date: 20120530
  Transmission Date: 20120825
  Serious: Yes (Hospitalization)
  Sender: FDA-Public Use
  Company Number: IT-SANOFI-AVENTIS-2012SA038192

PATIENT
  Age: 90 Year
  Sex: Female

DRUGS (6)
  1. LASIX [Suspect]
     Indication: ESSENTIAL HYPERTENSION
     Route: 048
     Dates: start: 20110215, end: 20120203
  2. RAMIPRIL [Suspect]
     Indication: ESSENTIAL HYPERTENSION
     Route: 065
     Dates: start: 20110704, end: 20120203
  3. LANOXIN [Concomitant]
     Dosage: STRENGTH: 0.125MG
  4. KANRENOL [Suspect]
     Route: 065
     Dates: start: 20110215, end: 20120203
  5. ENOXAPARIN SODIUM [Concomitant]
     Dosage: STRENGTH: 4000 IU
  6. COUMADIN [Concomitant]

REACTIONS (1)
  - SYNCOPE [None]
